FAERS Safety Report 10145952 (Version 1)
Quarter: 2014Q2

REPORT INFORMATION
  Report Type: Spontaneous
  Country: US (occurrence: US)
  Receive Date: 20140501
  Receipt Date: 20140501
  Transmission Date: 20141212
  Serious: No
  Sender: FDA-Public Use
  Company Number: US-ABBVIE-13P-163-1140529-00

PATIENT
  Age: 47 Year
  Sex: Female
  Weight: 43.13 kg

DRUGS (8)
  1. CREON [Suspect]
     Indication: PANCREATITIS CHRONIC
     Dosage: ONE WITH EACH MEAL
     Route: 048
     Dates: start: 201301
  2. CREON [Suspect]
     Indication: PANCREATIC INSUFFICIENCY
  3. OXYCONTIN [Concomitant]
     Indication: BACK PAIN
  4. OXYCONTIN [Concomitant]
     Indication: ABDOMINAL PAIN UPPER
  5. OXYCODONE [Concomitant]
     Indication: BACK PAIN
  6. OXYCODONE [Concomitant]
     Indication: ABDOMINAL PAIN UPPER
  7. LASIX [Concomitant]
     Indication: HYPERTENSION
  8. LISINOPRIL [Concomitant]
     Indication: HYPERTENSION

REACTIONS (5)
  - Cough [Not Recovered/Not Resolved]
  - Diarrhoea [Not Recovered/Not Resolved]
  - Nasopharyngitis [Not Recovered/Not Resolved]
  - Nausea [Not Recovered/Not Resolved]
  - Vomiting [Not Recovered/Not Resolved]
